FAERS Safety Report 7775970-4 (Version None)
Quarter: 2011Q3

REPORT INFORMATION
  Report Type: 
  Country: None (occurrence: None)
  Receive Date: 20110923
  Receipt Date: 20110914
  Transmission Date: 20111222
  Serious: Yes (Hospitalization)
  Sender: FDA-Public Use
  Company Number: CA-ASTRAZENECA-2011SE55872

PATIENT
  Age: 58 Year
  Sex: Male

DRUGS (7)
  1. NEXIUM [Suspect]
     Indication: GASTROOESOPHAGEAL REFLUX DISEASE
     Route: 048
     Dates: start: 20110701, end: 20110801
  2. INDAPAMIDE [Concomitant]
     Indication: DIABETES MELLITUS
  3. PRILOSEC [Suspect]
     Indication: GASTROOESOPHAGEAL REFLUX DISEASE
     Route: 048
     Dates: start: 20070101
  4. PRILOSEC [Suspect]
     Route: 048
  5. NOVORAPID INSULIN [Concomitant]
     Indication: DIABETES MELLITUS
  6. OLMESARTAN MEDOXOMIL [Concomitant]
     Indication: BLOOD PRESSURE ABNORMAL
  7. NORVASC [Concomitant]
     Indication: BLOOD PRESSURE ABNORMAL

REACTIONS (1)
  - COELIAC DISEASE [None]
